FAERS Safety Report 11475383 (Version 2)
Quarter: 2015Q4

REPORT INFORMATION
  Report Type: Report from Study
  Country: BR (occurrence: BR)
  Receive Date: 20150909
  Receipt Date: 20151009
  Transmission Date: 20160304
  Serious: Yes (Hospitalization)
  Sender: FDA-Public Use
  Company Number: BR-ROCHE-1630641

PATIENT
  Sex: Female
  Weight: 83 kg

DRUGS (4)
  1. ACTEMRA [Suspect]
     Active Substance: TOCILIZUMAB
     Indication: RHEUMATOID ARTHRITIS
     Dosage: LAST DOSE 28/JUL/2015
     Route: 042
     Dates: start: 20150518
  2. METFORMIN [Concomitant]
     Active Substance: METFORMIN HYDROCHLORIDE
     Route: 065
  3. HIRUDOID (BRAZIL) [Concomitant]
     Indication: INFLAMMATION
     Route: 065
  4. FERROUS SULFATE [Concomitant]
     Active Substance: FERROUS SULFATE\FERROUS SULFATE, DRIED
     Dosage: ONE TABLET ON TUESDAY, THURSDAY AND SATURDAY
     Route: 065

REACTIONS (5)
  - Varicose vein [Unknown]
  - Peripheral swelling [Unknown]
  - Venous occlusion [Unknown]
  - Glucose tolerance impaired [Unknown]
  - Pain [Unknown]
